FAERS Safety Report 9839013 (Version 1)
Quarter: 2013Q4

REPORT INFORMATION
  Report Type: Spontaneous
  Country: US (occurrence: None)
  Receive Date: 20131211
  Receipt Date: 20131211
  Transmission Date: 20140711
  Serious: Yes (Hospitalization)
  Sender: FDA-Public Use
  Company Number: 003-107

PATIENT
  Age: 61 Year
  Sex: Female

DRUGS (1)
  1. CROFAB [Suspect]
     Indication: SNAKE BITE
     Dosage: ~70 VIAL STOTAL

REACTIONS (2)
  - Off label use [None]
  - Drug administration error [None]
